FAERS Safety Report 12003230 (Version 1)
Quarter: 2016Q1

REPORT INFORMATION
  Report Type: Spontaneous
  Country: US (occurrence: US)
  Receive Date: 20160204
  Receipt Date: 20160204
  Transmission Date: 20160526
  Serious: Yes (Death)
  Sender: FDA-Public Use
  Company Number: US-ASTELLAS-2016US004191

PATIENT
  Age: 66 Year
  Sex: Male

DRUGS (2)
  1. TARCEVA [Suspect]
     Active Substance: ERLOTINIB HYDROCHLORIDE
     Dosage: 750 MG ON DAY 1 AND 50 MG ON DAYS 2-14 OF EVERY 14 DAYS
     Route: 048
     Dates: start: 20150715
  2. TARCEVA [Suspect]
     Active Substance: ERLOTINIB HYDROCHLORIDE
     Indication: LUNG NEOPLASM MALIGNANT
     Route: 048
     Dates: start: 20140610

REACTIONS (1)
  - Death [Fatal]

NARRATIVE: CASE EVENT DATE: 20160202
